FAERS Safety Report 11733921 (Version 2)
Quarter: 2015Q4

REPORT INFORMATION
  Report Type: Spontaneous
  Country: US (occurrence: US)
  Receive Date: 20151113
  Receipt Date: 20151209
  Transmission Date: 20160304
  Serious: Yes (Hospitalization)
  Sender: FDA-Public Use
  Company Number: US-BEH-2015055542

PATIENT
  Age: 31 Year
  Sex: Female
  Weight: 47 kg

DRUGS (9)
  1. RESTASIS [Concomitant]
     Active Substance: CYCLOSPORINE
     Dosage: 0.05% EYE EMULSION
  2. HIZENTRA [Suspect]
     Active Substance: HUMAN IMMUNOGLOBULIN G
     Indication: PRIMARY IMMUNODEFICIENCY SYNDROME
     Dosage: 1 GM 5 ML VIAL
     Route: 058
     Dates: start: 20140529
  3. HIZENTRA [Suspect]
     Active Substance: HUMAN IMMUNOGLOBULIN G
     Indication: PRIMARY IMMUNODEFICIENCY SYNDROME
     Dosage: 1 GM 5 ML VIAL
     Route: 058
     Dates: start: 20140529
  4. AZITHROMYCIN [Concomitant]
     Active Substance: AZITHROMYCIN ANHYDROUS
  5. ONDANSETRON [Concomitant]
     Active Substance: ONDANSETRON
  6. NORTRIPTYLINE [Concomitant]
     Active Substance: NORTRIPTYLINE
  7. GABAPENTIN. [Concomitant]
     Active Substance: GABAPENTIN
  8. NORTREL [Concomitant]
     Active Substance: ETHINYL ESTRADIOL\NORETHINDRONE
  9. COMPLETE MULTIVITAMINS [Concomitant]

REACTIONS (1)
  - Atypical pneumonia [Recovering/Resolving]

NARRATIVE: CASE EVENT DATE: 20151026
